FAERS Safety Report 26013702 (Version 1)
Quarter: 2025Q4

REPORT INFORMATION
  Report Type: Spontaneous
  Country: US (occurrence: US)
  Receive Date: 20251107
  Receipt Date: 20251107
  Transmission Date: 20260118
  Serious: Yes (Other)
  Sender: PURDUE
  Company Number: US-PURDUE-USA-2025-0321904

PATIENT
  Age: 11 Year
  Sex: Female

DRUGS (1)
  1. DEXTROAMPHETAMINE SACCHARATE, AMPHETAMINE ASPARTATE, DEXTROAMPHETAMINE [Suspect]
     Active Substance: AMPHETAMINE ASPARTATE\AMPHETAMINE SULFATE\DEXTROAMPHETAMINE SACCHARATE\DEXTROAMPHETAMINE SULFATE
     Indication: Product used for unknown indication
     Dosage: UNK
     Route: 048

REACTIONS (15)
  - Ventricular arrhythmia [Unknown]
  - Ventricular tachycardia [Recovered/Resolved]
  - Myocardial injury [Unknown]
  - Toxicity to various agents [Unknown]
  - Electrocardiogram QT prolonged [Unknown]
  - Electrocardiogram QRS complex prolonged [Unknown]
  - Intentional product misuse [Unknown]
  - Left ventricular dysfunction [Unknown]
  - Feeling jittery [Unknown]
  - Drug screen positive [Unknown]
  - Drug diversion [Unknown]
  - Anxiety [Unknown]
  - Ventricular extrasystoles [Unknown]
  - Tachypnoea [Unknown]
  - Hypertension [Unknown]
